FAERS Safety Report 5286607-0 (Version None)
Quarter: 2007Q2

REPORT INFORMATION
  Report Type: 
  Country: None (occurrence: None)
  Receive Date: 20070404
  Receipt Date: 20070330
  Transmission Date: 20071010
  Serious: Yes (Other)
  Sender: FDA-Public Use
  Company Number: US-GLAXOSMITHKLINE-A0645394A

PATIENT
  Age: 68 Year
  Sex: Male

DRUGS (6)
  1. WELLBUTRIN [Suspect]
     Dosage: 150MG TWICE PER DAY
     Route: 048
     Dates: start: 20070302
  2. COREG [Concomitant]
  3. VERAPAMIL [Concomitant]
  4. VITAMIN E [Concomitant]
  5. FISH OIL [Concomitant]
  6. CENTRUM SILVER [Concomitant]

REACTIONS (5)
  - CYANOSIS [None]
  - DRUG INEFFECTIVE [None]
  - ERYTHEMA [None]
  - NAUSEA [None]
  - RETCHING [None]
